FAERS Safety Report 21206694 (Version 1)
Quarter: 2022Q3

REPORT INFORMATION
  Report Type: Spontaneous
  Country: US (occurrence: US)
  Receive Date: 20220812
  Receipt Date: 20220812
  Transmission Date: 20221027
  Serious: Yes (Hospitalization)
  Sender: FDA-Public Use
  Company Number: US-MYLANLABS-2022M1085082

PATIENT
  Age: 60 Year
  Sex: Male

DRUGS (3)
  1. LITHIUM [Interacting]
     Active Substance: LITHIUM
     Indication: Bipolar disorder
     Dosage: 900 MILLIGRAM, QD
     Route: 065
  2. LITHIUM [Interacting]
     Active Substance: LITHIUM
     Dosage: RE-STARTED LITHIUM 300MG TWO TIMES DAY.
     Route: 065
  3. ASENAPINE [Interacting]
     Active Substance: ASENAPINE
     Indication: Bipolar disorder
     Dosage: 10 MILLIGRAM, QD, PER NIGHTLY
     Route: 065

REACTIONS (4)
  - Toxicity to various agents [Recovered/Resolved]
  - Neuroleptic malignant syndrome [Recovered/Resolved]
  - Drug interaction [Recovered/Resolved]
  - Respiratory failure [Recovered/Resolved]
